FAERS Safety Report 9350413 (Version 21)
Quarter: 2015Q2

REPORT INFORMATION
  Report Type: Spontaneous
  Country: US (occurrence: US)
  Receive Date: 20130617
  Receipt Date: 20150527
  Transmission Date: 20150821
  Serious: Yes (Death, Other)
  Sender: FDA-Public Use
  Company Number: US-PFIZER INC-2013178272

PATIENT
  Age: 74 Year
  Sex: Female
  Weight: 108 kg

DRUGS (14)
  1. BAG BALM [Concomitant]
     Dosage: UNK
  2. PREPARATION H NOS [Concomitant]
     Active Substance: COCOA BUTTER\PETROLATUM\PHENYLEPHRINE HYDROCHLORIDE\PHENYLEPHRINE HYDROCHLORIDE OR MINERAL OIL
     Dosage: UNK
  3. SUTENT [Suspect]
     Active Substance: SUNITINIB MALATE
     Dosage: 25 MG, CYCLIC
     Dates: start: 20140206, end: 20141117
  4. VITAMIN D [Concomitant]
     Active Substance: CHOLECALCIFEROL
     Dosage: UNK
  5. TYLENOL WITH CODEINE [Concomitant]
     Active Substance: ACETAMINOPHEN\CODEINE PHOSPHATE
     Indication: ARTHRALGIA
     Dosage: 1-2 UNK, AS NEEDED (PRN)
  6. VITAMIN E [Concomitant]
     Active Substance: .ALPHA.-TOCOPHEROL
     Dosage: UNK
  7. VITAMIN B12 [Concomitant]
     Active Substance: CYANOCOBALAMIN
     Dosage: UNK
  8. LORAZEPAM. [Concomitant]
     Active Substance: LORAZEPAM
     Dosage: UNK
  9. TYLENOL [Concomitant]
     Active Substance: ACETAMINOPHEN
     Indication: PAIN
     Dosage: UNK
  10. SUTENT [Suspect]
     Active Substance: SUNITINIB MALATE
     Indication: RENAL CANCER
     Dosage: 37.5 MG, CYCLIC (DAILY 4 WEEKS ON AND 2 WEEKS OFF)
     Route: 048
     Dates: start: 20130611
  11. COLACE [Concomitant]
     Active Substance: DOCUSATE SODIUM
     Dosage: UNK
  12. ZOFRAN [Concomitant]
     Active Substance: ONDANSETRON HYDROCHLORIDE
     Indication: NAUSEA
     Dosage: 8 MG, 3X/DAY AS NEEDED
     Route: 048
     Dates: start: 20130611
  13. OMEPRAZOLE. [Concomitant]
     Active Substance: OMEPRAZOLE
     Dosage: UNK
  14. PROTONIX [Concomitant]
     Active Substance: PANTOPRAZOLE SODIUM
     Dosage: UNK

REACTIONS (43)
  - Weight increased [Recovering/Resolving]
  - Hot flush [Unknown]
  - Dysuria [Recovered/Resolved]
  - Pain in extremity [Unknown]
  - Fatigue [Unknown]
  - Arthralgia [Unknown]
  - Groin pain [Unknown]
  - Hyperhidrosis [Unknown]
  - Rhinorrhoea [Unknown]
  - Insomnia [Unknown]
  - Arthritis [Unknown]
  - Death [Fatal]
  - Depression [Unknown]
  - Flatulence [Not Recovered/Not Resolved]
  - Blister [Unknown]
  - Gingival atrophy [Unknown]
  - Cough [Unknown]
  - Dry skin [Unknown]
  - Haemorrhage [Unknown]
  - Dyspepsia [Unknown]
  - Increased appetite [Unknown]
  - Diarrhoea [Recovering/Resolving]
  - Eyelid ptosis [Unknown]
  - Eye irritation [Not Recovered/Not Resolved]
  - Stomatitis [Unknown]
  - Spinal pain [Unknown]
  - Disease progression [Unknown]
  - Renal cancer [Unknown]
  - Lacrimation increased [Unknown]
  - Anal pruritus [Unknown]
  - Skin discolouration [Unknown]
  - Headache [Unknown]
  - Oesophagitis [Unknown]
  - Limb discomfort [Not Recovered/Not Resolved]
  - Erythema [Unknown]
  - Pain in extremity [Unknown]
  - Abdominal pain upper [Unknown]
  - Toothache [Unknown]
  - Visual acuity reduced [Unknown]
  - Wound complication [Unknown]
  - Renal pain [Unknown]
  - Pain [Unknown]
  - Sweat discolouration [Unknown]

NARRATIVE: CASE EVENT DATE: 2013
